FAERS Safety Report 15455885 (Version 3)
Quarter: 2020Q4

REPORT INFORMATION
  Report Type: Spontaneous
  Country: US (occurrence: CL)
  Receive Date: 20181002
  Receipt Date: 20201201
  Transmission Date: 20210113
  Serious: Yes (Hospitalization, Other)
  Sender: FDA-Public Use
  Company Number: CL-BIOMARINAP-CL-2018-120032

PATIENT
  Age: 1 Year
  Sex: Male

DRUGS (4)
  1. ALDURAZYME [Suspect]
     Active Substance: LARONIDASE
     Dosage: 2 DOSAGE FORM, QW
     Route: 041
  2. PARACETAMOL [Concomitant]
     Active Substance: ACETAMINOPHEN
     Indication: PREMEDICATION
     Dosage: UNK
  3. CHLORPHENAMINE [Concomitant]
     Active Substance: CHLORPHENIRAMINE MALEATE
     Indication: PREMEDICATION
  4. ALDURAZYME [Suspect]
     Active Substance: LARONIDASE
     Indication: MUCOPOLYSACCHARIDOSIS I
     Dosage: 2 DOSAGE FORM, QW
     Route: 041
     Dates: start: 20171227, end: 201809

REACTIONS (6)
  - Pneumonia [Recovering/Resolving]
  - Clostridium difficile infection [Unknown]
  - Oropharyngeal pain [Unknown]
  - Pyrexia [Unknown]
  - Unevaluable event [Unknown]
  - Cough [Unknown]
